FAERS Safety Report 7900584-2 (Version None)
Quarter: 2011Q4

REPORT INFORMATION
  Report Type: 
  Country: None (occurrence: None)
  Receive Date: 20111108
  Receipt Date: 20111031
  Transmission Date: 20120403
  Serious: Yes (Hospitalization, Other)
  Sender: FDA-Public Use
  Company Number: US-US-EMD SERONO, INC.-7058874

PATIENT
  Sex: Female
  Weight: 59 kg

DRUGS (2)
  1. ASACOL [Concomitant]
  2. REBIF [Suspect]
     Indication: MULTIPLE SCLEROSIS
     Route: 058
     Dates: start: 20070903

REACTIONS (16)
  - CROHN'S DISEASE [None]
  - PARANOIA [None]
  - COELIAC DISEASE [None]
  - RENAL DISORDER [None]
  - ANXIETY [None]
  - MALIGNANT MELANOMA [None]
  - DEPRESSION [None]
  - BACTERIAL INFECTION [None]
  - ADVERSE DRUG REACTION [None]
  - HIP ARTHROPLASTY [None]
  - HYPOAESTHESIA [None]
  - INCOHERENT [None]
  - COLITIS ULCERATIVE [None]
  - OESOPHAGEAL STENOSIS [None]
  - COGNITIVE DISORDER [None]
  - INJECTION SITE REACTION [None]
